FAERS Safety Report 5113751-0 (Version None)
Quarter: 2006Q3

REPORT INFORMATION
  Report Type: 
  Country: None (occurrence: None)
  Receive Date: 20060921
  Receipt Date: 20060921
  Transmission Date: 20061208
  Serious: Yes (Hospitalization)
  Sender: FDA-Public Use
  Company Number: None

PATIENT
  Sex: Male
  Weight: 86.4 kg

DRUGS (13)
  1. CAMPATH [Suspect]
     Indication: IMMUNOSUPPRESSION
     Dosage: 30 MG IV (2ND DOSE)
     Route: 042
     Dates: start: 20060405
  2. CAMPATH [Suspect]
     Indication: IMMUNOSUPPRESSION
     Dosage: 30 MG IV (2ND DOSE)
     Route: 042
     Dates: start: 20060409
  3. APAP TAB [Concomitant]
  4. ACYCLOVIRA [Concomitant]
  5. SSI [Concomitant]
  6. BENADRYL [Concomitant]
  7. COLACE [Concomitant]
  8. PREVACID [Concomitant]
  9. METOPROLOL TARTRATE [Concomitant]
  10. M.V.I. [Concomitant]
  11. NYSTATIN [Concomitant]
  12. PERCOCET [Concomitant]
  13. TACROLIMUS [Concomitant]

REACTIONS (6)
  - BLOOD PRESSURE INCREASED [None]
  - DYSPNOEA [None]
  - HEART RATE INCREASED [None]
  - PO2 DECREASED [None]
  - RASH GENERALISED [None]
  - THROAT TIGHTNESS [None]
